FAERS Safety Report 8732680 (Version 3)
Quarter: 2012Q4

REPORT INFORMATION
  Report Type: Spontaneous
  Country: JP (occurrence: None)
  Receive Date: 20120801
  Receipt Date: 20120831
  Transmission Date: 20130627
  Serious: Yes (Other)
  Sender: FDA-Public Use
  Company Number: JP-2012-15885

PATIENT
  Age: 88 Year
  Sex: Male
  Weight: 76 kg

DRUGS (11)
  1. SAMSCA [Suspect]
     Indication: FLUID RETENTION
     Dosage: 15 MG MILLIGRAM(S), QAM
     Route: 048
     Dates: start: 20120628, end: 20120704
  2. SAMSCA [Suspect]
     Indication: FLUID RETENTION
     Dosage: 7.5 MILLIGRAM(S), QAM, ORAL
     Route: 048
     Dates: start: 20120705
  3. ENALAPRIL MALEATE [Suspect]
     Indication: CARDIAC FAILURE
     Dosage: 5 MG MILLIGRAM(S), DAILY DOSE, ORAL
     Route: 048
     Dates: end: 20120701
  4. SPIRONOLACTONE [Suspect]
     Indication: CARDIAC FAILURE
     Dosage: 25 MG MILLIGRAM(S), DAILY DOSE, ORAL
     Route: 048
     Dates: end: 20120701
  5. HANP (CARPERITIDE) [Concomitant]
  6. DOPAMINE HYDROCHLORIDE [Concomitant]
  7. CARVEDILOL [Concomitant]
  8. WARFARIN SODIUM [Concomitant]
  9. LASIX [Concomitant]
  10. PIMOBENDAN (PIMOBENDAN) [Concomitant]
  11. ALLOPURINOL [Concomitant]

REACTIONS (2)
  - Renal failure [None]
  - Hyperkalaemia [None]
